FAERS Safety Report 7623423-6 (Version None)
Quarter: 2011Q3

REPORT INFORMATION
  Report Type: 
  Country: None (occurrence: None)
  Receive Date: 20110720
  Receipt Date: 20110705
  Transmission Date: 20111222
  Serious: Yes (Other)
  Sender: FDA-Public Use
  Company Number: BR-SANOFI-AVENTIS-2011SA044340

PATIENT
  Age: 70 Year
  Sex: Male
  Weight: 98 kg

DRUGS (7)
  1. DIGOXIN [Concomitant]
  2. ASPIRIN [Concomitant]
  3. DRONEDARONE HCL [Suspect]
     Indication: ATRIAL FIBRILLATION
     Route: 048
     Dates: start: 20110331, end: 20110407
  4. ACARBOSE [Concomitant]
  5. CARVEDILOL [Concomitant]
  6. VERAPAMIL [Concomitant]
  7. FUROSEMIDE [Concomitant]

REACTIONS (1)
  - CARDIAC FAILURE [None]
